FAERS Safety Report 6645461-2 (Version None)
Quarter: 2010Q1

REPORT INFORMATION
  Report Type: 
  Country: None (occurrence: None)
  Receive Date: 20100322
  Receipt Date: 20100316
  Transmission Date: 20100710
  Serious: Yes (Death, Life-Threatening, Other)
  Sender: FDA-Public Use
  Company Number: JP-ASTRAZENECA-2009SE03778

PATIENT
  Age: 28925 Day
  Sex: Male
  Weight: 38 kg

DRUGS (7)
  1. IRESSA [Suspect]
     Indication: LUNG ADENOCARCINOMA
     Route: 048
     Dates: start: 20070116, end: 20080919
  2. IRESSA [Suspect]
     Route: 048
     Dates: start: 20090620, end: 20090630
  3. LOXONIN [Concomitant]
     Indication: CANCER PAIN
     Route: 048
     Dates: start: 20090601, end: 20090630
  4. OXYCONTIN [Concomitant]
     Indication: CANCER PAIN
     Route: 048
     Dates: start: 20090601, end: 20090630
  5. PHENYTOIN [Concomitant]
     Route: 048
     Dates: start: 20090604, end: 20090620
  6. TEGRETOL [Concomitant]
     Route: 048
     Dates: start: 20090604, end: 20090620
  7. PREDONINE [Concomitant]
     Route: 048
     Dates: start: 20090604, end: 20090630

REACTIONS (5)
  - DECREASED APPETITE [None]
  - INTERSTITIAL LUNG DISEASE [None]
  - MALAISE [None]
  - PNEUMONIA ASPIRATION [None]
  - PNEUMONIA BACTERIAL [None]
